FAERS Safety Report 11117627 (Version 1)
Quarter: 2015Q2

REPORT INFORMATION
  Report Type: Other
  Country: GB (occurrence: GB)
  Receive Date: 20150517
  Receipt Date: 20150517
  Transmission Date: 20150821
  Serious: Yes (Hospitalization)
  Sender: FDA-Public Use
  Company Number: GB-MYLANLABS-2015M1015191

PATIENT

DRUGS (8)
  1. FELODIPINE. [Suspect]
     Active Substance: FELODIPINE
     Dosage: 10 MG, QD
     Route: 048
     Dates: start: 201503, end: 2015
  2. ATENOLOL. [Concomitant]
     Active Substance: ATENOLOL
     Indication: HYPERTENSION
     Dosage: 100 MG, QD
     Route: 048
     Dates: start: 2008
  3. FELODIPINE. [Suspect]
     Active Substance: FELODIPINE
     Dosage: 2.5 MG, QD
     Route: 048
     Dates: start: 2015, end: 201503
  4. DOXAZOSIN [Concomitant]
     Active Substance: DOXAZOSIN\DOXAZOSIN MESYLATE
     Indication: HYPERTENSION
     Dosage: UNK
     Dates: start: 2008
  5. ATORVASTATIN [Concomitant]
     Active Substance: ATORVASTATIN
     Dosage: 10 MG, QD
     Route: 048
  6. BENDROFLUMETHIAZIDE [Suspect]
     Active Substance: BENDROFLUMETHIAZIDE
     Indication: HYPERTENSION
     Dosage: 2.5 MG, QD
     Route: 048
     Dates: start: 2008, end: 20150414
  7. PERINDOPRIL [Concomitant]
     Active Substance: PERINDOPRIL
     Indication: HYPERTENSION
     Dosage: 8 MG, QD
     Route: 048
     Dates: start: 2008
  8. WARFARIN [Concomitant]
     Active Substance: WARFARIN
     Dosage: UNK
     Route: 048

REACTIONS (9)
  - Hypotension [Unknown]
  - Hypokalaemia [Recovering/Resolving]
  - Nausea [Unknown]
  - Back pain [Unknown]
  - Urinary tract infection [Unknown]
  - Hyponatraemia [Recovering/Resolving]
  - Gout [Recovering/Resolving]
  - Dizziness [Unknown]
  - Joint swelling [Unknown]

NARRATIVE: CASE EVENT DATE: 20150419
